FAERS Safety Report 5737114-X (Version None)
Quarter: 2008Q2

REPORT INFORMATION
  Report Type: 
  Country: None (occurrence: None)
  Receive Date: 20080513
  Receipt Date: 20080513
  Transmission Date: 20081010
  Serious: Yes (Hospitalization, Other)
  Sender: FDA-Public Use
  Company Number: None

PATIENT
  Age: 46 Year
  Sex: Male
  Weight: 81.6475 kg

DRUGS (1)
  1. CHANTIX [Suspect]
     Indication: SMOKING CESSATION THERAPY
     Dosage: 1/  2MG TABLET TWICE A DAY PO
     Route: 048

REACTIONS (5)
  - APPENDICITIS PERFORATED [None]
  - APPENDIX DISORDER [None]
  - CONSTIPATION [None]
  - NO THERAPEUTIC RESPONSE [None]
  - SWELLING [None]
